FAERS Safety Report 21151363 (Version 1)
Quarter: 2022Q3

REPORT INFORMATION
  Report Type: Spontaneous
  Country: US (occurrence: None)
  Receive Date: 20220730
  Receipt Date: 20220730
  Transmission Date: 20221026
  Serious: No
  Sender: FDA-Public Use
  Company Number: 2022A243749

PATIENT
  Sex: Female
  Weight: 52.2 kg

DRUGS (7)
  1. PULMICORT FLEXHALER [Suspect]
     Active Substance: BUDESONIDE
     Indication: Chronic obstructive pulmonary disease
     Route: 055
  2. PREDNISONE [Concomitant]
     Active Substance: PREDNISONE
     Dosage: 5 DAYS
  3. ATORVASTATIN [Concomitant]
     Active Substance: ATORVASTATIN
  4. CLOPIDOGREL [Concomitant]
     Active Substance: CLOPIDOGREL BISULFATE
     Dosage: 75 MG
  5. METOPROLOL [Concomitant]
     Active Substance: METOPROLOL
     Dosage: 25 MG
  6. NITROGLYCERIN [Concomitant]
     Active Substance: NITROGLYCERIN
  7. LISINOPRIL [Concomitant]
     Active Substance: LISINOPRIL
     Dosage: 2.5 MG

REACTIONS (6)
  - Speech disorder [Unknown]
  - Dyspnoea [Unknown]
  - Cough [Unknown]
  - Device malfunction [Unknown]
  - General physical health deterioration [Unknown]
  - Peak expiratory flow rate abnormal [Unknown]
